FAERS Safety Report 8295780-1 (Version None)
Quarter: 2012Q2

REPORT INFORMATION
  Report Type: 
  Country: None (occurrence: None)
  Receive Date: 20120416
  Receipt Date: 20120416
  Transmission Date: 20120825
  Serious: Yes (Other)
  Sender: FDA-Public Use
  Company Number: None

PATIENT
  Sex: Female
  Weight: 122.4712 kg

DRUGS (18)
  1. PROGRAF [Concomitant]
  2. ALPRAZOLAM [Concomitant]
  3. FUROSEMIDE [Concomitant]
  4. PREDNISONE TAB [Concomitant]
  5. METOPROLOL TARTRATE [Concomitant]
  6. SULFAMETHOXAZOLE AND TRIMETHOPRIM DOUBLE STRENGTH [Concomitant]
  7. RAMIPRIL [Concomitant]
  8. ACYCLOVIR [Concomitant]
  9. VIVELLE-DOT [Concomitant]
  10. ESCITALOPRAM [Suspect]
     Indication: SLEEP DISORDER
     Dosage: 10MG BY MOUTH DAILY
     Route: 048
     Dates: start: 20120404, end: 20120411
  11. ESCITALOPRAM [Suspect]
     Indication: LUNG TRANSPLANT
     Dosage: 10MG BY MOUTH DAILY
     Route: 048
     Dates: start: 20120404, end: 20120411
  12. SYNTHROID [Concomitant]
  13. AZITHROMYCIN [Concomitant]
  14. LOVAZA [Concomitant]
  15. CRESTOR [Concomitant]
  16. ALLOPURINOL [Concomitant]
  17. ACTOS [Concomitant]
  18. ALENDRONATE SODIUM [Concomitant]

REACTIONS (3)
  - PSYCHOMOTOR HYPERACTIVITY [None]
  - INSOMNIA [None]
  - ABNORMAL DREAMS [None]
